FAERS Safety Report 4344674-2 (Version None)
Quarter: 2004Q2

REPORT INFORMATION
  Report Type: 
  Country: None (occurrence: None)
  Receive Date: 20040419
  Receipt Date: 20040407
  Transmission Date: 20050107
  Serious: Yes (Hospitalization)
  Sender: FDA-Public Use
  Company Number: K200400508

PATIENT
  Age: 45 Year
  Sex: Female

DRUGS (3)
  1. NORDETTE-21 [Suspect]
     Indication: CONTRACEPTION
     Dosage: REGULAR, QD, ORAL
     Route: 048
     Dates: end: 20031021
  2. SINGULAIR [Suspect]
     Indication: ASTHMA
     Dosage: 10 MG , QD, ORAL
     Route: 048
     Dates: end: 20031028
  3. BECLOMETHASONE DIPROPIONATE [Concomitant]

REACTIONS (7)
  - ALANINE AMINOTRANSFERASE INCREASED [None]
  - ASPARTATE AMINOTRANSFERASE INCREASED [None]
  - BLOOD ALKALINE PHOSPHATASE INCREASED [None]
  - GAMMA-GLUTAMYLTRANSFERASE INCREASED [None]
  - HEPATIC STEATOSIS [None]
  - HEPATITIS A ANTIBODY POSITIVE [None]
  - HEPATOMEGALY [None]
